FAERS Safety Report 7672634-2 (Version None)
Quarter: 2011Q3

REPORT INFORMATION
  Report Type: 
  Country: None (occurrence: None)
  Receive Date: 20110804
  Receipt Date: 20110720
  Transmission Date: 20111222
  Serious: Yes (Other)
  Sender: FDA-Public Use
  Company Number: LOC-00927

PATIENT
  Sex: Female

DRUGS (6)
  1. TOPAMAX [Concomitant]
  2. PROMISEB TOPICAL CREAM (ALTERNATING WITH LOCOID LIPOCREAM) [Suspect]
     Indication: DERMATITIS
     Dosage: APPLY EVERY OTHER WEEK, ALTERNATING WITH LOCOID LIPOCREAM, TOPICALLY
     Route: 061
     Dates: start: 20110101, end: 20110701
  3. XOLEGEL (KETOCONAZOLE) TOPICAL [Suspect]
     Indication: DERMATITIS
     Dosage: TOPICALLY
     Route: 061
     Dates: start: 20110101, end: 20110701
  4. PROMISEB TOPICAL CREAM [Suspect]
     Indication: DERMATITIS
     Dosage: TOPICALLY
     Route: 061
     Dates: start: 20110101, end: 20110701
  5. LOCOID LIPOCREAM [Suspect]
     Indication: BLEPHARITIS
     Dosage: BID, TOPICALLY
     Route: 061
     Dates: start: 20110127, end: 20110101
  6. LOCOID LIPOCREAM [Suspect]
     Indication: DERMATITIS
     Dosage: APPLY EVERY OTHER WEEK, ALTERNATING WITH PROMISEB, TOPICALLY
     Route: 061
     Dates: start: 20110101, end: 20110701

REACTIONS (7)
  - SKIN SWELLING [None]
  - DERMATITIS [None]
  - SKIN CANCER [None]
  - THERMAL BURN [None]
  - ERYTHEMA [None]
  - SKIN BURNING SENSATION [None]
  - DRUG INEFFECTIVE [None]
